FAERS Safety Report 4784291-3 (Version None)
Quarter: 2005Q3

REPORT INFORMATION
  Report Type: 
  Country: None (occurrence: None)
  Receive Date: 20050930
  Receipt Date: 20050720
  Transmission Date: 20060218
  Serious: Yes (Other)
  Sender: FDA-Public Use
  Company Number: SEWYE856325JUL05

PATIENT
  Age: 62 Year
  Sex: Female

DRUGS (3)
  1. ENBREL [Suspect]
     Indication: RHEUMATOID ARTHRITIS
     Route: 058
     Dates: start: 20031201, end: 20040617
  2. ENBREL [Suspect]
     Route: 058
     Dates: start: 20050723, end: 20050727
  3. METHOTREXATE [Concomitant]
     Route: 048

REACTIONS (2)
  - LEUKOPENIA [None]
  - POLYNEUROPATHY CHRONIC [None]
